FAERS Safety Report 22917939 (Version 2)
Quarter: 2023Q4

REPORT INFORMATION
  Report Type: Spontaneous
  Country: JP (occurrence: JP)
  Receive Date: 20230907
  Receipt Date: 20231218
  Transmission Date: 20240109
  Serious: Yes (Death, Other)
  Sender: FDA-Public Use
  Company Number: JP-MSD-M2023-36256

PATIENT
  Age: 75 Year
  Sex: Female

DRUGS (1)
  1. KEYTRUDA [Suspect]
     Active Substance: PEMBROLIZUMAB
     Indication: Colon cancer
     Dosage: 200 MILLIGRAM, Q3W
     Route: 041
     Dates: start: 202004, end: 202008

REACTIONS (2)
  - Immune-mediated hypothyroidism [Recovering/Resolving]
  - Malignant neoplasm progression [Fatal]

NARRATIVE: CASE EVENT DATE: 20200601
